FAERS Safety Report 5848152-0 (Version None)
Quarter: 2008Q3

REPORT INFORMATION
  Report Type: 
  Country: None (occurrence: None)
  Receive Date: 20080818
  Receipt Date: 20080812
  Transmission Date: 20090109
  Serious: Yes (Other)
  Sender: FDA-Public Use
  Company Number: A0742198A

PATIENT

DRUGS (3)
  1. TYKERB [Suspect]
     Indication: BREAST CANCER
     Route: 048
     Dates: start: 20080601
  2. TAXOL [Concomitant]
  3. XELODA [Concomitant]

REACTIONS (1)
  - NEUROTOXICITY [None]
